FAERS Safety Report 6119824-8 (Version None)
Quarter: 2009Q1

REPORT INFORMATION
  Report Type: 
  Country: None (occurrence: None)
  Receive Date: 20090311
  Receipt Date: 20090227
  Transmission Date: 20090719
  Serious: No
  Sender: FDA-Public Use
  Company Number: 2008-187731-NL

PATIENT
  Age: 40 Year
  Sex: Female

DRUGS (5)
  1. ETONOGESTREL (BATCH #: 347456/396921) [Suspect]
     Indication: CONTRACEPTION
     Dosage: DF
     Dates: end: 20081027
  2. ETONOGESTREL (BATCH #: 347456/396921) [Suspect]
     Indication: CONTRACEPTION
     Dosage: DF
     Dates: start: 20081027, end: 20081127
  3. STATIN [Concomitant]
  4. METFORMIN [Concomitant]
  5. GLICLAZIDE [Concomitant]

REACTIONS (1)
  - DIABETES MELLITUS INADEQUATE CONTROL [None]
